FAERS Safety Report 9157648 (Version 1)
Quarter: 2013Q1

REPORT INFORMATION
  Report Type: Spontaneous
  Country: FR (occurrence: None)
  Receive Date: 20130213
  Receipt Date: 20130213
  Transmission Date: 20140127
  Serious: Yes (Life-Threatening)
  Sender: FDA-Public Use
  Company Number: FR-2012-2446

PATIENT
  Age: 63 Year
  Sex: Male
  Weight: 75 kg

DRUGS (4)
  1. NAVELBINE [Suspect]
     Indication: LUNG NEOPLASM MALIGNANT
     Route: 042
     Dates: start: 200802, end: 200805
  2. NAVELBINE [Suspect]
     Route: 042
     Dates: start: 200802, end: 200805
  3. CISPLATIN [Suspect]
     Indication: LUNG NEOPLASM MALIGNANT
     Route: 042
     Dates: start: 200802, end: 200805
  4. TARCEVA [Suspect]
     Route: 048
     Dates: start: 200810, end: 20120428

REACTIONS (3)
  - Acute myeloid leukaemia [None]
  - Drug intolerance [None]
  - Sepsis [None]
